FAERS Safety Report 19813356 (Version 1)
Quarter: 2021Q3

REPORT INFORMATION
  Report Type: Spontaneous
  Country: US (occurrence: US)
  Receive Date: 20210909
  Receipt Date: 20210909
  Transmission Date: 20211014
  Serious: Yes (Death)
  Sender: FDA-Public Use
  Company Number: None

PATIENT
  Age: 15 Year
  Sex: Male
  Weight: 112 kg

DRUGS (1)
  1. KYMRIAH [Suspect]
     Active Substance: TISAGENLECLEUCEL
     Indication: FALL
     Dates: start: 20210811, end: 20210811

REACTIONS (9)
  - Blast cell crisis [None]
  - Disorientation [None]
  - Hypotension [None]
  - Seizure [None]
  - Cerebrovascular accident [None]
  - Urine output decreased [None]
  - Thrombocytopenia [None]
  - Leukocytosis [None]
  - Agitation [None]

NARRATIVE: CASE EVENT DATE: 20210903
